FAERS Safety Report 13785487 (Version 1)
Quarter: 2017Q3

REPORT INFORMATION
  Report Type: Spontaneous
  Country: US (occurrence: US)
  Receive Date: 20170724
  Receipt Date: 20170724
  Transmission Date: 20171127
  Serious: No
  Sender: FDA-Public Use
  Company Number: None

PATIENT
  Age: 37 Year
  Sex: Female
  Weight: 99 kg

DRUGS (1)
  1. GADOLINIUM [Suspect]
     Active Substance: GADOLINIUM
     Indication: NUCLEAR MAGNETIC RESONANCE IMAGING
     Dosage: ?          OTHER FREQUENCY:ONCE;?
     Route: 042
     Dates: start: 20170629

REACTIONS (3)
  - Pruritus [None]
  - Dysgeusia [None]
  - Eye irritation [None]

NARRATIVE: CASE EVENT DATE: 20170629
